FAERS Safety Report 6936796-4 (Version None)
Quarter: 2010Q3

REPORT INFORMATION
  Report Type: 
  Country: None (occurrence: None)
  Receive Date: 20100823
  Receipt Date: 20100817
  Transmission Date: 20110219
  Serious: Yes (Hospitalization, Other)
  Sender: FDA-Public Use
  Company Number: FR-ROXANE LABORATORIES, INC.-2010-RO-01100RO

PATIENT
  Age: 55 Year
  Sex: Male

DRUGS (6)
  1. PREDNISONE [Suspect]
     Indication: ASTHMA
     Dosage: 20 MG
     Route: 048
  2. PREDNISONE [Suspect]
     Route: 048
  3. STEROIDS [Suspect]
     Indication: ASTHMA
     Route: 055
  4. LONG-ACTING BETA2 MIMETICS [Suspect]
     Indication: ASTHMA
     Route: 055
  5. MONTELUKAST SODIUM [Suspect]
     Indication: ASTHMA
     Route: 055
  6. MASITINIB [Suspect]
     Indication: ASTHMA
     Route: 055

REACTIONS (3)
  - ALLERGIC GRANULOMATOUS ANGIITIS [None]
  - ASTHMA [None]
  - DRUG DEPENDENCE [None]
